FAERS Safety Report 7233268-7 (Version None)
Quarter: 2011Q1

REPORT INFORMATION
  Report Type: 
  Country: None (occurrence: None)
  Receive Date: 20110119
  Receipt Date: 20110111
  Transmission Date: 20110831
  Serious: Yes (Other)
  Sender: FDA-Public Use
  Company Number: PHHO2011DK01010

PATIENT
  Sex: Female
  Weight: 47 kg

DRUGS (1)
  1. FTY 720 [Suspect]
     Indication: MULTIPLE SCLEROSIS
     Dosage: 0.5 MG, UNK
     Route: 048
     Dates: start: 20101125

REACTIONS (3)
  - ABORTION INDUCED [None]
  - PREGNANCY [None]
  - DRUG EXPOSURE DURING PREGNANCY [None]
